FAERS Safety Report 6337062-0 (Version None)
Quarter: 2009Q3

REPORT INFORMATION
  Report Type: 
  Country: None (occurrence: None)
  Receive Date: 20090901
  Receipt Date: 20090820
  Transmission Date: 20100115
  Serious: Yes (Hospitalization)
  Sender: FDA-Public Use
  Company Number: US-BAXTER-2009BH013076

PATIENT
  Age: 66 Year
  Sex: Female

DRUGS (2)
  1. DIANEAL [Suspect]
     Indication: PERITONEAL DIALYSIS
     Route: 033
     Dates: end: 20090731
  2. DIANEAL [Suspect]
     Indication: PERITONEAL DIALYSIS
     Route: 033
     Dates: end: 20090731

REACTIONS (5)
  - ABDOMINAL PAIN [None]
  - HYPOVOLAEMIA [None]
  - IMPAIRED GASTRIC EMPTYING [None]
  - NAUSEA [None]
  - VOMITING [None]
